FAERS Safety Report 10748032 (Version 1)
Quarter: 2015Q1

REPORT INFORMATION
  Report Type: Spontaneous
  Country: US (occurrence: US)
  Receive Date: 20150129
  Receipt Date: 20150129
  Transmission Date: 20150721
  Serious: Yes (Other)
  Sender: FDA-Public Use
  Company Number: US-RB-072576-15

PATIENT
  Age: 62 Year
  Sex: Female

DRUGS (1)
  1. MUCINEX DM MAXIMUM STRENGTH [Suspect]
     Active Substance: DEXTROMETHORPHAN HYDROBROMIDE\GUAIFENESIN
     Indication: PRODUCT USED FOR UNKNOWN INDICATION
     Dosage: TOOK 1 TABLET (TOTAL) ON 19-JAN-2015 AT 05:00PM
     Route: 065
     Dates: start: 20150119

REACTIONS (5)
  - Dizziness [Recovering/Resolving]
  - Hallucination [Recovered/Resolved]
  - Diarrhoea [Recovered/Resolved]
  - Burning sensation [Recovered/Resolved]
  - Nausea [Recovered/Resolved]

NARRATIVE: CASE EVENT DATE: 20150119
